FAERS Safety Report 7195650-6 (Version None)
Quarter: 2010Q4

REPORT INFORMATION
  Report Type: 
  Country: None (occurrence: None)
  Receive Date: 20101223
  Receipt Date: 20101006
  Transmission Date: 20110411
  Serious: No
  Sender: FDA-Public Use
  Company Number: US-AMGEN-KDL443742

PATIENT

DRUGS (6)
  1. ENBREL [Suspect]
     Indication: PRODUCT USED FOR UNKNOWN INDICATION
     Dosage: 50 MG, 2 TIMES/WK
  2. IBUPROFEN [Concomitant]
  3. PAROXETINE HYDROCHLORIDE [Concomitant]
     Dosage: 10 MG, UNK
  4. ERGOCALCIFEROL [Concomitant]
     Dosage: UNK UNK, UNK
  5. ACETAMINOPHEN [Concomitant]
     Dosage: 325 MG, UNK
  6. ACITRETIN [Concomitant]
     Dosage: 10 MG, UNK

REACTIONS (1)
  - RASH [None]
